FAERS Safety Report 4923153-5 (Version None)
Quarter: 2006Q1

REPORT INFORMATION
  Report Type: 
  Country: None (occurrence: None)
  Receive Date: 20060113
  Receipt Date: 20050311
  Transmission Date: 20060701
  Serious: Yes (Other)
  Sender: FDA-Public Use
  Company Number: HQWYE201216JUL04

PATIENT
  Age: 57 Year
  Sex: Female
  Weight: 79.45 kg

DRUGS (7)
  1. PREMPRO [Suspect]
     Indication: HORMONE REPLACEMENT THERAPY
     Dates: start: 19930101
  2. LISINOPRIL/HYDROCHLOROTHIAZIDE (LISINOPRIL/HYDROCHLOROTHIAZIDE) [Concomitant]
  3. HYDROXYZINE HCL [Concomitant]
  4. CLONAZEPAM [Concomitant]
  5. LEXAPRO [Concomitant]
  6. MECLIZINE [Concomitant]
  7. METOCLOPRAMIDE [Concomitant]

REACTIONS (2)
  - DEEP VEIN THROMBOSIS [None]
  - PULMONARY EMBOLISM [None]
